FAERS Safety Report 25688801 (Version 1)
Quarter: 2025Q3

REPORT INFORMATION
  Report Type: Spontaneous
  Country: US (occurrence: US)
  Receive Date: 20250818
  Receipt Date: 20250818
  Transmission Date: 20251020
  Serious: Yes (Other)
  Sender: SUNOVION
  Company Number: US-SUMITOMO PHARMA SWITZERLAND GMBH-2024SPA003593

PATIENT
  Age: 69 Year
  Sex: Male

DRUGS (6)
  1. ORGOVYX [Suspect]
     Active Substance: RELUGOLIX
     Indication: Prostate cancer
     Dosage: 360 MG, SINGLE
     Route: 048
     Dates: start: 20240515, end: 20240515
  2. ORGOVYX [Suspect]
     Active Substance: RELUGOLIX
     Dosage: 120 MG, QD
     Route: 048
     Dates: start: 20240516
  3. ROSUVASTATIN [Concomitant]
     Active Substance: ROSUVASTATIN
  4. PROCARDIA [Concomitant]
     Active Substance: NIFEDIPINE
  5. EPLERENONE [Concomitant]
     Active Substance: EPLERENONE
  6. ESCITALOPRAM [Concomitant]
     Active Substance: ESCITALOPRAM OXALATE

REACTIONS (3)
  - Pulmonary congestion [Unknown]
  - Wheezing [Unknown]
  - Product dose omission issue [Recovered/Resolved]
